FAERS Safety Report 20911647 (Version 1)
Quarter: 2022Q2

REPORT INFORMATION
  Report Type: Spontaneous
  Country: US (occurrence: None)
  Receive Date: 20220603
  Receipt Date: 20220603
  Transmission Date: 20220721
  Serious: Yes (unspecified)
  Sender: FDA-Public Use
  Company Number: None

PATIENT
  Age: 36 Year
  Sex: Male
  Weight: 88.45 kg

DRUGS (3)
  1. EYE WASH SALINE [Suspect]
     Active Substance: SODIUM CHLORIDE\WATER
  2. SUBOXONE [Concomitant]
     Active Substance: BUPRENORPHINE HYDROCHLORIDE\NALOXONE HYDROCHLORIDE
  3. IBUPROFEN [Concomitant]
     Active Substance: IBUPROFEN

REACTIONS (5)
  - Eye pain [None]
  - Eye irritation [None]
  - Ocular hyperaemia [None]
  - Eye complication associated with device [None]
  - Eye irritation [None]

NARRATIVE: CASE EVENT DATE: 20220602
